FAERS Safety Report 6268431-5 (Version None)
Quarter: 2009Q3

REPORT INFORMATION
  Report Type: 
  Country: None (occurrence: None)
  Receive Date: 20090715
  Receipt Date: 20090703
  Transmission Date: 20100115
  Serious: Yes (Hospitalization)
  Sender: FDA-Public Use
  Company Number: US-PFIZER INC-2008077666

PATIENT
  Sex: Male
  Weight: 99 kg

DRUGS (11)
  1. SUNITINIB MALATE [Suspect]
     Indication: MALIGNANT NEOPLASM OF ISLETS OF LANGERHANS
     Dosage: 37.5 MG, 1X/DAY
     Route: 048
     Dates: start: 20080721
  2. INSULIN GLARGINE [Concomitant]
     Route: 058
  3. METFORMIN HCL [Concomitant]
     Route: 048
  4. ZOFRAN [Concomitant]
     Route: 048
  5. LISINOPRIL [Concomitant]
     Route: 048
  6. COMPAZINE [Concomitant]
     Route: 048
  7. REGLAN [Concomitant]
     Route: 048
  8. VICODIN [Concomitant]
     Route: 048
  9. TRAMADOL HCL [Concomitant]
     Route: 048
  10. COLACE [Concomitant]
     Route: 048
  11. PENICILLIN [Concomitant]

REACTIONS (1)
  - MALLORY-WEISS SYNDROME [None]
